FAERS Safety Report 10090565 (Version 2)
Quarter: 2014Q2

REPORT INFORMATION
  Report Type: Spontaneous
  Country: US (occurrence: US)
  Receive Date: 20140421
  Receipt Date: 20140509
  Transmission Date: 20141212
  Serious: Yes (Hospitalization)
  Sender: FDA-Public Use
  Company Number: US-BAYER-2014-056801

PATIENT
  Age: 46 Year
  Sex: Female

DRUGS (11)
  1. YASMIN [Suspect]
     Indication: MENORRHAGIA
  2. MIRCETTE [Concomitant]
  3. AVAPRO [Concomitant]
     Dosage: 150 MG, UNK
     Route: 048
     Dates: start: 20011020
  4. ATENOLOL [Concomitant]
     Dosage: 25 MG, UNK
     Route: 048
     Dates: start: 20011020
  5. IMIPRAMINE [Concomitant]
     Dosage: 25 MG, UNK
     Route: 048
     Dates: start: 20011020
  6. PAXIL [Concomitant]
     Dosage: 10 MG, UNK
     Route: 048
     Dates: start: 20011020
  7. ASPIRIN [Concomitant]
     Dosage: UNK
     Route: 048
     Dates: start: 20011020
  8. MACROBID [Concomitant]
  9. AYGESTIN [Concomitant]
  10. IRON SULFATE [Concomitant]
  11. CENTRUM SILVER [Concomitant]

REACTIONS (2)
  - Deep vein thrombosis [None]
  - Pelvic venous thrombosis [None]
